FAERS Safety Report 9819501 (Version 2)
Quarter: 2014Q1

REPORT INFORMATION
  Report Type: Spontaneous
  Country: US (occurrence: US)
  Receive Date: 20140115
  Receipt Date: 20140115
  Transmission Date: 20141002
  Serious: No
  Sender: FDA-Public Use
  Company Number: US-GE HEALTHCARE MEDICAL DIAGNOSTICS-OSCN-PR-1002S-0048

PATIENT
  Sex: Male

DRUGS (1)
  1. OMNISCAN [Suspect]
     Route: 061
     Dates: start: 201002, end: 201002

REACTIONS (2)
  - Occupational exposure to product [Recovering/Resolving]
  - Eye pain [Recovering/Resolving]
